FAERS Safety Report 25989285 (Version 1)
Quarter: 2025Q4

REPORT INFORMATION
  Report Type: Report from Study
  Country: CA (occurrence: CA)
  Receive Date: 20251103
  Receipt Date: 20251103
  Transmission Date: 20260117
  Serious: Yes (Hospitalization)
  Sender: MYLAN
  Company Number: CA-MYLANLABS-2025M1092945

PATIENT
  Age: 2 Month
  Sex: Female

DRUGS (12)
  1. VERAPAMIL [Suspect]
     Active Substance: VERAPAMIL HYDROCHLORIDE
     Indication: Noonan syndrome
     Dosage: UNK
  2. VERAPAMIL [Suspect]
     Active Substance: VERAPAMIL HYDROCHLORIDE
     Indication: Hypertrophic cardiomyopathy
  3. AMIODARONE [Suspect]
     Active Substance: AMIODARONE
     Indication: Noonan syndrome
     Dosage: UNK
  4. AMIODARONE [Suspect]
     Active Substance: AMIODARONE
     Indication: Hypertrophic cardiomyopathy
  5. DILTIAZEM [Suspect]
     Active Substance: DILTIAZEM
     Indication: Noonan syndrome
     Dosage: UNK
  6. DILTIAZEM [Suspect]
     Active Substance: DILTIAZEM
     Indication: Hypertrophic cardiomyopathy
  7. FLECAINIDE [Suspect]
     Active Substance: FLECAINIDE
     Indication: Noonan syndrome
     Dosage: UNK
  8. FLECAINIDE [Suspect]
     Active Substance: FLECAINIDE
     Indication: Hypertrophic cardiomyopathy
  9. NADOLOL [Suspect]
     Active Substance: NADOLOL
     Indication: Noonan syndrome
     Dosage: UNK
  10. NADOLOL [Suspect]
     Active Substance: NADOLOL
     Indication: Hypertrophic cardiomyopathy
  11. CHLOROTHIAZIDE [Suspect]
     Active Substance: CHLOROTHIAZIDE
     Indication: Noonan syndrome
     Dosage: UNK
  12. CHLOROTHIAZIDE [Suspect]
     Active Substance: CHLOROTHIAZIDE
     Indication: Hypertrophic cardiomyopathy

REACTIONS (2)
  - Drug ineffective for unapproved indication [Unknown]
  - Off label use [Unknown]
